FAERS Safety Report 4898404-6 (Version None)
Quarter: 2006Q1

REPORT INFORMATION
  Report Type: 
  Country: None (occurrence: None)
  Receive Date: 20060126
  Receipt Date: 20060113
  Transmission Date: 20060701
  Serious: Yes (Hospitalization)
  Sender: FDA-Public Use
  Company Number: 2006BH000559

PATIENT
  Age: 68 Year
  Sex: Female
  Weight: 57.1532 kg

DRUGS (3)
  1. GAMMAGARD S/D [Suspect]
     Indication: PROPHYLAXIS
     Dosage: 40 GM; EVERY 3 WK; IV
     Route: 042
     Dates: start: 20051001, end: 20051228
  2. BENADRYL [Concomitant]
  3. TYLENOL (CAPLET) [Concomitant]

REACTIONS (5)
  - CHEST DISCOMFORT [None]
  - DYSPNOEA [None]
  - HYPERVENTILATION [None]
  - INCORRECT DRUG ADMINISTRATION RATE [None]
  - THROMBOSIS [None]
